FAERS Safety Report 4432798-0 (Version None)
Quarter: 2004Q3

REPORT INFORMATION
  Report Type: 
  Country: None (occurrence: None)
  Receive Date: 20040823
  Receipt Date: 20040811
  Transmission Date: 20050211
  Serious: Yes (Hospitalization)
  Sender: FDA-Public Use
  Company Number: 2004228039DE

PATIENT
  Sex: Female

DRUGS (2)
  1. CLINDAMYCIN HYDROCHLORIDE [Suspect]
     Indication: DENTAL TREATMENT
     Dosage: ORAL
     Route: 048
     Dates: start: 20040717, end: 20040719
  2. CLINDAMYCIN HYDROCHLORIDE [Suspect]
     Indication: DENTAL TREATMENT
     Dosage: ORAL
     Route: 048
     Dates: start: 20040728, end: 20040730

REACTIONS (1)
  - HEPATITIS [None]
